FAERS Safety Report 8500713-6 (Version None)
Quarter: 2012Q3

REPORT INFORMATION
  Report Type: 
  Country: None (occurrence: None)
  Receive Date: 20120710
  Receipt Date: 20120706
  Transmission Date: 20120928
  Serious: No
  Sender: FDA-Public Use
  Company Number: US-BAYER-2012-068446

PATIENT

DRUGS (3)
  1. ALEVE (CAPLET) [Suspect]
     Indication: PAIN
     Dosage: 8 DF, UNK
     Route: 048
  2. DOANS [Concomitant]
     Dosage: UNK
  3. PAIN SPRAY [Concomitant]

REACTIONS (1)
  - PAIN [None]
